FAERS Safety Report 11693252 (Version 1)
Quarter: 2015Q4

REPORT INFORMATION
  Report Type: Spontaneous
  Country: CN (occurrence: CN)
  Receive Date: 20151103
  Receipt Date: 20151103
  Transmission Date: 20160304
  Serious: Yes (Other)
  Sender: FDA-Public Use
  Company Number: CN-PFIZER INC-2015360299

PATIENT
  Age: 37 Year
  Sex: Female
  Weight: 69 kg

DRUGS (1)
  1. PHARMORUBICIN [Suspect]
     Active Substance: EPIRUBICIN
     Indication: BREAST CANCER
     Dosage: 130 MG, 1X/DAY
     Route: 041
     Dates: start: 20150409, end: 20150409

REACTIONS (4)
  - Liver injury [Recovering/Resolving]
  - Liver function test abnormal [Recovering/Resolving]
  - Nausea [Unknown]
  - Decreased appetite [Unknown]
